FAERS Safety Report 7977448-1 (Version None)
Quarter: 2011Q4

REPORT INFORMATION
  Report Type: 
  Country: None (occurrence: None)
  Receive Date: 20111214
  Receipt Date: 20111117
  Transmission Date: 20120403
  Serious: No
  Sender: FDA-Public Use
  Company Number: US-AMGEN-USASP2011060689

PATIENT
  Age: 80 Year
  Sex: Female

DRUGS (1)
  1. ENBREL [Suspect]
     Indication: ANKYLOSING SPONDYLITIS
     Dosage: 50 MG, QWK
     Dates: start: 20110801

REACTIONS (5)
  - INJECTION SITE PAIN [None]
  - MALAISE [None]
  - NASAL CONGESTION [None]
  - ARTHRITIS [None]
  - NASOPHARYNGITIS [None]
